FAERS Safety Report 5659353-9 (Version None)
Quarter: 2008Q1

REPORT INFORMATION
  Report Type: 
  Country: None (occurrence: None)
  Receive Date: 20080311
  Receipt Date: 20080229
  Transmission Date: 20080703
  Serious: Yes (Death, Hospitalization)
  Sender: FDA-Public Use
  Company Number: CH-JNJFOC-20080206625

PATIENT
  Age: 64 Year
  Sex: Female

DRUGS (9)
  1. TRAMADOL HCL [Suspect]
     Route: 048
  2. TRAMADOL HCL [Suspect]
     Route: 048
  3. TRAMADOL HCL [Suspect]
     Route: 048
  4. TRAMADOL HCL [Suspect]
     Indication: ABDOMINAL PAIN
     Route: 048
  5. CEFTRIAXONE [Concomitant]
     Route: 065
  6. METRONIDAZOLE HCL [Concomitant]
     Route: 065
  7. CIPROFLOXACIN [Concomitant]
     Route: 065
  8. AUGMENTIN '125' [Concomitant]
     Route: 065
  9. CILASTATIN W/IMIPENEM [Concomitant]
     Route: 065

REACTIONS (3)
  - DEATH [None]
  - DEPRESSED LEVEL OF CONSCIOUSNESS [None]
  - HEPATIC ENCEPHALOPATHY [None]
